FAERS Safety Report 14852840 (Version 1)
Quarter: 2018Q2

REPORT INFORMATION
  Report Type: Spontaneous
  Country: US (occurrence: US)
  Receive Date: 20180507
  Receipt Date: 20180507
  Transmission Date: 20180711
  Serious: Yes (Other)
  Sender: FDA-Public Use
  Company Number: US-BAYER-2018-083690

PATIENT
  Age: 27 Year
  Sex: Female

DRUGS (1)
  1. MIRENA [Suspect]
     Active Substance: LEVONORGESTREL
     Dosage: 20 MCG/24HR, CONT
     Route: 015
     Dates: start: 201302

REACTIONS (15)
  - Neck pain [None]
  - Dizziness [None]
  - Vision blurred [None]
  - Idiopathic intracranial hypertension [None]
  - Headache [None]
  - Musculoskeletal pain [None]
  - Tinnitus [None]
  - Amnesia [None]
  - Diplopia [None]
  - Papilloedema [None]
  - Vomiting [None]
  - Blindness [None]
  - Back pain [None]
  - Nausea [None]
  - Visual impairment [None]

NARRATIVE: CASE EVENT DATE: 20150206
